FAERS Safety Report 21301656 (Version 1)
Quarter: 2022Q3

REPORT INFORMATION
  Report Type: Spontaneous
  Country: US (occurrence: None)
  Receive Date: 20220906
  Receipt Date: 20220906
  Transmission Date: 20221027
  Serious: No
  Sender: FDA-Public Use
  Company Number: None

PATIENT
  Age: 64 Year
  Sex: Female

DRUGS (2)
  1. MEKINIST [Suspect]
     Active Substance: TRAMETINIB DIMETHYL SULFOXIDE
     Dosage: FREQUENCY : DAILY;?
     Route: 048
     Dates: start: 202207, end: 202208
  2. TAFINLAR [Suspect]
     Active Substance: DABRAFENIB MESYLATE

REACTIONS (5)
  - Therapy interrupted [None]
  - Pyrexia [None]
  - Chills [None]
  - Abdominal pain upper [None]
  - Adverse drug reaction [None]

NARRATIVE: CASE EVENT DATE: 20220806
